FAERS Safety Report 25044789 (Version 1)
Quarter: 2025Q1

REPORT INFORMATION
  Report Type: Spontaneous
  Country: CZ (occurrence: CZ)
  Receive Date: 20250306
  Receipt Date: 20250306
  Transmission Date: 20250408
  Serious: Yes (Other)
  Sender: CELLTRION
  Company Number: CZ-CELLTRION INC.-2024CZ000964

PATIENT

DRUGS (1)
  1. YUFLYMA [Suspect]
     Active Substance: ADALIMUMAB-AATY
     Indication: Crohn^s disease
     Dates: end: 20250219

REACTIONS (6)
  - Acne [Recovering/Resolving]
  - COVID-19 [Recovered/Resolved]
  - Infection [Recovering/Resolving]
  - Sinusitis [Recovering/Resolving]
  - Streptococcal infection [Recovered/Resolved]
  - Drug ineffective [Unknown]

NARRATIVE: CASE EVENT DATE: 20231010
